FAERS Safety Report 17405448 (Version 2)
Quarter: 2020Q1

REPORT INFORMATION
  Report Type: Spontaneous
  Country: SE (occurrence: SE)
  Receive Date: 20200212
  Receipt Date: 20200330
  Transmission Date: 20200409
  Serious: Yes (Other)
  Sender: FDA-Public Use
  Company Number: SE-TEVA-2020-SE-1181336

PATIENT
  Age: 55 Year
  Sex: Female

DRUGS (11)
  1. JARDIANCE [Concomitant]
     Active Substance: EMPAGLIFLOZIN
     Dosage: 25 MG PER DAY
     Route: 048
     Dates: start: 20180924
  2. IBUPROFEN. [Suspect]
     Active Substance: IBUPROFEN
     Indication: PAIN
     Dosage: 1200 MG PER DAY
     Route: 048
     Dates: start: 20191109, end: 20191111
  3. VOLTAREN EMULGEL [Suspect]
     Active Substance: DICLOFENAC DIETHYLAMINE
     Dates: start: 20190916
  4. NOVOPULMON NOVOLIZER 200 MIKROGRAM/DOS INHALATIONSPULVER [Concomitant]
     Dosage: 1-2 INHALATIONS 2-3 TIMES DAILY
     Route: 055
     Dates: start: 20190423
  5. ALVEDON 500 MG FILMDRAGERAD TABLETT [Concomitant]
     Active Substance: ACETAMINOPHEN
     Dosage: 2 TABLETS 3-4 TIMES DAILY
     Route: 048
     Dates: start: 20190514
  6. BRICANYL TURBUHALER 0,25 MG/DOS INHALATIONSPULVER [Concomitant]
     Dosage: 1 INHALATION AT MOST 8 TIMES A DAY IF NEEDED
     Route: 055
     Dates: start: 20190423
  7. LIPITOR 20 MG FILMDRAGERAD TABLETT [Concomitant]
     Dosage: 20 MG PER DAY
     Route: 048
     Dates: start: 20160630
  8. DIVISUN 800 IE TABLETT [Concomitant]
     Dosage: 1600 IU PER DAY
     Route: 048
     Dates: start: 20160630
  9. OMEPRAZOLE. [Concomitant]
     Active Substance: OMEPRAZOLE
     Dosage: 20 MG PER DAY
     Route: 048
     Dates: start: 20190515
  10. NOVOMIX 30 FLEXPEN 100 E/ML INJEKTIONSVATSKA, SUSPENSION I FORFYLLD IN [Concomitant]
     Dosage: 52 IU, QD, SUSPENSION FOR INJECTION IN PRE-FILLED PEN
     Route: 058
     Dates: start: 20190514
  11. METFORMIN [Concomitant]
     Active Substance: METFORMIN HYDROCHLORIDE
     Dosage: 1000 MG, QD
     Route: 048
     Dates: start: 20180423

REACTIONS (1)
  - Hypersensitivity [Recovered/Resolved]

NARRATIVE: CASE EVENT DATE: 20191111
